FAERS Safety Report 17959588 (Version 2)
Quarter: 2020Q3

REPORT INFORMATION
  Report Type: Spontaneous
  Country: US (occurrence: US)
  Receive Date: 20200629
  Receipt Date: 20200707
  Transmission Date: 20201103
  Serious: No
  Sender: FDA-Public Use
  Company Number: US-PFIZER INC-2020246954

PATIENT

DRUGS (1)
  1. PREMARIN [Suspect]
     Active Substance: ESTROGENS, CONJUGATED
     Indication: HYSTERECTOMY
     Dosage: UNK
     Route: 067

REACTIONS (3)
  - Drug hypersensitivity [Unknown]
  - Off label use [Unknown]
  - Product use in unapproved indication [Unknown]
